FAERS Safety Report 17543151 (Version 1)
Quarter: 2020Q1

REPORT INFORMATION
  Report Type: Spontaneous
  Country: FR (occurrence: FR)
  Receive Date: 20200316
  Receipt Date: 20200316
  Transmission Date: 20200409
  Serious: Yes (Hospitalization)
  Sender: FDA-Public Use
  Company Number: FR-AUROBINDO-AUR-APL-2020-012141

PATIENT
  Age: 57 Year
  Sex: Male
  Weight: 76 kg

DRUGS (7)
  1. KARDEGIC [Suspect]
     Active Substance: ASPIRIN DL-LYSINE
     Indication: PROPHYLAXIS
     Dosage: 160 MILLIGRAM, ONCE A DAY
     Route: 048
     Dates: start: 20200204
  2. PANTOPRAZOLE SODIUM. [Suspect]
     Active Substance: PANTOPRAZOLE SODIUM
     Indication: PROPHYLAXIS
     Dosage: 20 MILLIGRAM, ONCE A DAY
     Route: 048
     Dates: start: 20200204, end: 20200212
  3. REVLIMID [Suspect]
     Active Substance: LENALIDOMIDE
     Indication: LYMPHOMA
     Dosage: 1 DOSAGE FORM 1 TOTAL
     Route: 041
     Dates: start: 20200203
  4. ALLOPURINOL ARROW [Suspect]
     Active Substance: ALLOPURINOL
     Indication: PROPHYLAXIS
     Dosage: 300 MILLIGRAM, ONCE A DAY
     Route: 048
     Dates: start: 20200204, end: 20200212
  5. VALACICLOVIR [Suspect]
     Active Substance: VALACYCLOVIR HYDROCHLORIDE
     Indication: PROPHYLAXIS
     Dosage: 1000 MILLIGRAM, ONCE A DAY
     Route: 048
     Dates: start: 20200204, end: 20200212
  6. OBINUTUZUMAB. [Suspect]
     Active Substance: OBINUTUZUMAB
     Indication: LYMPHOMA
     Dosage: 1 DOSAGE FORM 1 TOTAL
     Route: 041
     Dates: start: 20200203
  7. BACTRIM [Suspect]
     Active Substance: SULFAMETHOXAZOLE\TRIMETHOPRIM
     Indication: PROPHYLAXIS
     Dosage: 3 DOSAGE FORM, EVERY WEEK
     Route: 048
     Dates: start: 20200204, end: 20200212

REACTIONS (2)
  - Rash erythematous [Recovered/Resolved]
  - Pyrexia [Recovered/Resolved]

NARRATIVE: CASE EVENT DATE: 20200210
